FAERS Safety Report 10276515 (Version 2)
Quarter: 2014Q4

REPORT INFORMATION
  Report Type: Spontaneous
  Country: JP (occurrence: JP)
  Receive Date: 20140703
  Receipt Date: 20141013
  Transmission Date: 20150528
  Serious: Yes (Life-Threatening, Hospitalization)
  Sender: FDA-Public Use
  Company Number: JP-PFIZER INC-2014183976

PATIENT
  Age: 78 Year
  Sex: Male

DRUGS (6)
  1. ANCARON [Suspect]
     Active Substance: AMIODARONE HYDROCHLORIDE
     Indication: TORSADE DE POINTES
  2. ANCARON [Suspect]
     Active Substance: AMIODARONE HYDROCHLORIDE
     Indication: TORSADE DE POINTES
  3. ANCARON [Suspect]
     Active Substance: AMIODARONE HYDROCHLORIDE
     Indication: CARDIAC FAILURE
     Dosage: 100 MG, DAILY
     Route: 048
     Dates: start: 20140528, end: 20140609
  4. ANCARON [Suspect]
     Active Substance: AMIODARONE HYDROCHLORIDE
     Indication: CARDIAC FAILURE
  5. ANCARON [Suspect]
     Active Substance: AMIODARONE HYDROCHLORIDE
     Indication: VENTRICULAR TACHYCARDIA
     Dosage: UNK
     Route: 042
     Dates: start: 20140528
  6. ANCARON [Suspect]
     Active Substance: AMIODARONE HYDROCHLORIDE
     Indication: VENTRICULAR TACHYCARDIA

REACTIONS (1)
  - Cell marker increased [Recovered/Resolved]

NARRATIVE: CASE EVENT DATE: 20140528
